FAERS Safety Report 5264428-2 (Version None)
Quarter: 2007Q1

REPORT INFORMATION
  Report Type: 
  Country: None (occurrence: None)
  Receive Date: 20070309
  Receipt Date: 20070227
  Transmission Date: 20070707
  Serious: Yes (Hospitalization, Other)
  Sender: FDA-Public Use
  Company Number: 2006-06167

PATIENT
  Age: 68 Year
  Sex: Male

DRUGS (6)
  1. PROBENECID [Suspect]
     Indication: GOUT
     Dosage: 500 MG, DAILY, ORAL, 250 MG, DAILY, ORAL
     Route: 048
     Dates: end: 20061106
  2. PROBENECID [Suspect]
     Indication: GOUT
     Dosage: 500 MG, DAILY, ORAL, 250 MG, DAILY, ORAL
     Route: 048
     Dates: start: 20051201
  3. CORTISONE ACETATE [Suspect]
     Indication: GOUT
     Dosage: SINGLE SHOT
     Dates: start: 20060501
  4. PROBENECID [Suspect]
     Dosage: 250 MG, DAILY, ORAL, 500 MG, DAILY, ORAL
     Route: 048
     Dates: start: 20061107, end: 20061205
  5. PROBENECID [Suspect]
     Dosage: 250 MG, DAILY, ORAL, 500 MG, DAILY, ORAL
     Route: 048
     Dates: start: 20061206
  6. COUMADIN [Concomitant]

REACTIONS (8)
  - ATRIAL FIBRILLATION [None]
  - BACK PAIN [None]
  - CEREBROVASCULAR ACCIDENT [None]
  - EPIDIDYMITIS [None]
  - MOBILITY DECREASED [None]
  - NERVE INJURY [None]
  - PAIN IN EXTREMITY [None]
  - TRANSIENT ISCHAEMIC ATTACK [None]
